FAERS Safety Report 7197593-0 (Version None)
Quarter: 2010Q4

REPORT INFORMATION
  Report Type: 
  Country: None (occurrence: None)
  Receive Date: 20101207
  Receipt Date: 20101124
  Transmission Date: 20110411
  Serious: Yes (Hospitalization, Other)
  Sender: FDA-Public Use
  Company Number: 2010PROUSA00104

PATIENT
  Age: 66 Year
  Sex: Male
  Weight: 97.3 kg

DRUGS (13)
  1. PROVENGE [Suspect]
     Indication: PROSTATE CANCER METASTATIC
     Dosage: 250 ML, SINGLE INTRAVENOUS
     Route: 042
     Dates: start: 20101018, end: 20101018
  2. PROVENGE [Suspect]
     Indication: PROSTATE CANCER METASTATIC
     Dosage: 250 ML, SINGLE INTRAVENOUS
     Route: 042
     Dates: start: 20101105, end: 20101105
  3. PROVENGE [Suspect]
     Indication: PROSTATE CANCER METASTATIC
     Dosage: 250 ML, SINGLE INTRAVENOUS
     Route: 042
     Dates: start: 20101119, end: 20101119
  4. MELOXICAM [Concomitant]
  5. FAMOTIDINE [Concomitant]
  6. ATENOLOL [Concomitant]
  7. SIMVASTATIN [Concomitant]
  8. FENOFIBRATE [Concomitant]
  9. VITAMIN D [Concomitant]
  10. OSCAL (CALCIUM CARBONATE) [Concomitant]
  11. BICALUTAMIDE [Concomitant]
  12. LEUPROLIDE ACETE [Concomitant]
  13. LISNOPRIL W/HYDROCHLOROTHIAZIDE (HYDROCHLOROTHIAZIDE, LISNOPRIL) [Concomitant]

REACTIONS (9)
  - ARTHRALGIA [None]
  - ATRIOVENTRICULAR BLOCK FIRST DEGREE [None]
  - CHEST DISCOMFORT [None]
  - FLANK PAIN [None]
  - METASTASES TO BONE [None]
  - MUSCLE SPASMS [None]
  - MUSCULOSKELETAL CHEST PAIN [None]
  - MYALGIA [None]
  - PLEURAL FIBROSIS [None]
